FAERS Safety Report 5877579-6 (Version None)
Quarter: 2008Q3

REPORT INFORMATION
  Report Type: 
  Country: None (occurrence: None)
  Receive Date: 20080911
  Receipt Date: 20080904
  Transmission Date: 20090109
  Serious: Yes (Other)
  Sender: FDA-Public Use
  Company Number: PHBS2007JP14737

PATIENT
  Sex: Male

DRUGS (7)
  1. DIOVAN [Suspect]
     Dosage: 80 MG/DAY
     Route: 048
  2. NITOROL [Suspect]
     Dosage: 2 DF, UNK
  3. ATELEC [Concomitant]
     Dosage: 10 MG, UNK
     Route: 048
  4. PLAVIX [Concomitant]
     Dosage: 75 MEQ/KG, UNK
     Route: 048
     Dates: start: 20061101
  5. ASPIRIN [Concomitant]
     Dosage: 200 MG, UNK
  6. TERBINAFINE HCL [Concomitant]
     Dosage: 125 MG, UNK
     Route: 048
     Dates: start: 20071001
  7. IPD [Concomitant]
     Dosage: 300 MG, UNK
     Route: 048
     Dates: start: 20080121

REACTIONS (2)
  - ERYTHEMA MULTIFORME [None]
  - LYMPHOCYTE STIMULATION TEST POSITIVE [None]
